FAERS Safety Report 11089885 (Version 1)
Quarter: 2015Q2

REPORT INFORMATION
  Report Type: Spontaneous
  Country: US (occurrence: US)
  Receive Date: 20150505
  Receipt Date: 20150505
  Transmission Date: 20150821
  Serious: Yes (Hospitalization, Other)
  Sender: FDA-Public Use
  Company Number: US-ELI_LILLY_AND_COMPANY-US201504008493

PATIENT
  Age: 80 Year
  Sex: Male
  Weight: 93.88 kg

DRUGS (5)
  1. GLYBURIDE. [Concomitant]
     Active Substance: GLYBURIDE
  2. HUMALOG [Suspect]
     Active Substance: INSULIN LISPRO
     Indication: TYPE 2 DIABETES MELLITUS
     Dosage: UNK UNK, PRN
     Route: 065
     Dates: start: 201410
  3. INSULIN [Concomitant]
     Active Substance: INSULIN NOS
  4. HUMALOG [Suspect]
     Active Substance: INSULIN LISPRO
     Indication: TYPE 2 DIABETES MELLITUS
     Dosage: UNK, PRN
     Route: 065
  5. LEVEMIR [Concomitant]
     Active Substance: INSULIN DETEMIR

REACTIONS (10)
  - Loss of consciousness [Unknown]
  - Blood glucose decreased [Unknown]
  - Hypoglycaemia [Unknown]
  - Amnesia [Unknown]
  - Weight decreased [Unknown]
  - Medication error [Unknown]
  - Incorrect product storage [Unknown]
  - Incorrect dose administered [Unknown]
  - Myocardial infarction [Unknown]
  - Pain [Unknown]

NARRATIVE: CASE EVENT DATE: 20150221
